FAERS Safety Report 18430059 (Version 1)
Quarter: 2020Q4

REPORT INFORMATION
  Report Type: Spontaneous
  Country: US (occurrence: US)
  Receive Date: 20201027
  Receipt Date: 20201027
  Transmission Date: 20210114
  Serious: No
  Sender: FDA-Public Use
  Company Number: US-SA-2020SA295854

PATIENT

DRUGS (2)
  1. RECLAST [Concomitant]
     Active Substance: ZOLEDRONIC ACID
  2. DUPIXENT [Suspect]
     Active Substance: DUPILUMAB
     Indication: SENILE OSTEOPOROSIS
     Dosage: 300 MG, QOW
     Route: 058

REACTIONS (4)
  - Pruritus [Unknown]
  - Rash [Unknown]
  - Laboratory test abnormal [Unknown]
  - Product use in unapproved indication [Unknown]
